FAERS Safety Report 15140243 (Version 1)
Quarter: 2018Q3

REPORT INFORMATION
  Report Type: Spontaneous
  Country: FR (occurrence: FR)
  Receive Date: 20180713
  Receipt Date: 20180713
  Transmission Date: 20181010
  Serious: Yes (Death, Hospitalization, Other)
  Sender: FDA-Public Use
  Company Number: FR-AUROBINDO-AUR-APL-2018-034427

PATIENT
  Age: 43 Year
  Sex: Female
  Weight: 101 kg

DRUGS (1)
  1. PREDNISONE ARROW TABLET 20MG [Suspect]
     Active Substance: PREDNISONE
     Indication: HEPATITIS ALCOHOLIC
     Dosage: 40 MILLIGRAM, ONCE A DAY
     Route: 048
     Dates: start: 20180314, end: 20180412

REACTIONS (3)
  - Abdominal abscess [Fatal]
  - Pneumocystis jirovecii pneumonia [Fatal]
  - Multiple organ dysfunction syndrome [Fatal]

NARRATIVE: CASE EVENT DATE: 20180409
